FAERS Safety Report 23359948 (Version 2)
Quarter: 2024Q1

REPORT INFORMATION
  Report Type: Spontaneous
  Country: US (occurrence: US)
  Receive Date: 20240103
  Receipt Date: 20240207
  Transmission Date: 20240410
  Serious: Yes (Hospitalization, Other)
  Sender: FDA-Public Use
  Company Number: US-BIOVITRUM-2023-US-021406

PATIENT
  Age: 5 Month
  Sex: Male

DRUGS (4)
  1. SYNAGIS [Suspect]
     Active Substance: PALIVIZUMAB
     Indication: Fallot^s tetralogy
     Dosage: 15MG/KG, EVERY MONTH
     Route: 030
     Dates: start: 20231108
  2. SYNAGIS [Suspect]
     Active Substance: PALIVIZUMAB
     Indication: Takayasu^s arteritis
  3. SYNAGIS [Suspect]
     Active Substance: PALIVIZUMAB
     Indication: Pulmonary valve stenosis
  4. SYNAGIS [Suspect]
     Active Substance: PALIVIZUMAB
     Indication: Trisomy 21

REACTIONS (2)
  - Nasopharyngitis [Unknown]
  - Change in seizure presentation [Unknown]
